FAERS Safety Report 16130073 (Version 1)
Quarter: 2019Q1

REPORT INFORMATION
  Report Type: Spontaneous
  Country: ES (occurrence: ES)
  Receive Date: 20190328
  Receipt Date: 20190328
  Transmission Date: 20190418
  Serious: Yes (Other)
  Sender: FDA-Public Use
  Company Number: ES-PFIZER INC-2019127698

PATIENT
  Age: 48 Year
  Sex: Male

DRUGS (1)
  1. CHAMPIX [Suspect]
     Active Substance: VARENICLINE TARTRATE
     Indication: TOBACCO ABUSE
     Dosage: UNK
     Route: 048
     Dates: start: 20190215, end: 20190228

REACTIONS (1)
  - Obsessive thoughts [Recovered/Resolved]

NARRATIVE: CASE EVENT DATE: 20190220
